FAERS Safety Report 23875323 (Version 1)
Quarter: 2024Q2

REPORT INFORMATION
  Report Type: Spontaneous
  Country: CN (occurrence: CN)
  Receive Date: 20240520
  Receipt Date: 20240520
  Transmission Date: 20240715
  Serious: Yes (Other)
  Sender: FDA-Public Use
  Company Number: CN-002147023-NVSC2024CN104698

PATIENT
  Age: 52 Year
  Sex: Female

DRUGS (1)
  1. SACUBITRIL\VALSARTAN [Suspect]
     Active Substance: SACUBITRIL\VALSARTAN
     Indication: Cardiac failure
     Dosage: 0.025 G, BID
     Route: 048
     Dates: start: 20240403, end: 20240404

REACTIONS (5)
  - Blood pressure decreased [Recovered/Resolved]
  - Dizziness [Recovered/Resolved]
  - Prescribed underdose [Unknown]
  - Wrong technique in product usage process [Unknown]
  - Product label confusion [Unknown]

NARRATIVE: CASE EVENT DATE: 20240404
